FAERS Safety Report 17264210 (Version 1)
Quarter: 2020Q1

REPORT INFORMATION
  Report Type: Spontaneous
  Country: FR (occurrence: FR)
  Receive Date: 20200113
  Receipt Date: 20200113
  Transmission Date: 20200409
  Serious: Yes (Other)
  Sender: FDA-Public Use
  Company Number: NVSC2020FR005349

PATIENT
  Sex: Female

DRUGS (1)
  1. AMOXICILLIN. [Suspect]
     Active Substance: AMOXICILLIN
     Indication: NASOPHARYNGITIS
     Dosage: 1 G, TID (1 TABLET OF 1 G))
     Route: 065

REACTIONS (2)
  - Pharyngeal swelling [Unknown]
  - Vertigo [Unknown]
